FAERS Safety Report 18001609 (Version 1)
Quarter: 2020Q3

REPORT INFORMATION
  Report Type: Spontaneous
  Country: US (occurrence: US)
  Receive Date: 20200709
  Receipt Date: 20200709
  Transmission Date: 20201103
  Serious: No
  Sender: FDA-Public Use
  Company Number: US-009507513-2006USA010494

PATIENT
  Age: 72 Year
  Sex: Female

DRUGS (5)
  1. DILTIAZEM XR [Concomitant]
     Active Substance: DILTIAZEM
  2. COZAAR [Suspect]
     Active Substance: LOSARTAN POTASSIUM
     Indication: HYPERTENSION
     Dosage: 50 MILLIGRAM, QD
     Route: 048
     Dates: start: 20200529, end: 20200616
  3. COZAAR [Suspect]
     Active Substance: LOSARTAN POTASSIUM
     Dosage: 75 MILLIGRAM, QD
     Route: 048
     Dates: start: 20200616, end: 202006
  4. ELIQUIS [Concomitant]
     Active Substance: APIXABAN
  5. COZAAR [Suspect]
     Active Substance: LOSARTAN POTASSIUM
     Dosage: 50 MILLIGRAM, QD
     Route: 048
     Dates: start: 202006

REACTIONS (5)
  - Paraesthesia [Not Recovered/Not Resolved]
  - Hypersensitivity [Not Recovered/Not Resolved]
  - Pain [Not Recovered/Not Resolved]
  - Hypoaesthesia [Not Recovered/Not Resolved]
  - Arthralgia [Not Recovered/Not Resolved]

NARRATIVE: CASE EVENT DATE: 202006
